FAERS Safety Report 7394310-6 (Version None)
Quarter: 2011Q2

REPORT INFORMATION
  Report Type: 
  Country: None (occurrence: None)
  Receive Date: 20110405
  Receipt Date: 20110329
  Transmission Date: 20111010
  Serious: Yes (Death)
  Sender: FDA-Public Use
  Company Number: JP-JNJFOC-20110301520

PATIENT
  Sex: Female
  Weight: 50 kg

DRUGS (5)
  1. RISPERDAL [Concomitant]
     Indication: SCHIZOPHRENIA
     Route: 048
  2. LENDORMIN [Concomitant]
     Indication: SCHIZOPHRENIA
     Route: 048
  3. LULLAN [Concomitant]
     Indication: SCHIZOPHRENIA
     Route: 048
  4. INVEGA [Suspect]
     Indication: SCHIZOPHRENIA
     Route: 048
  5. DEPAS [Concomitant]
     Indication: SCHIZOPHRENIA
     Route: 048

REACTIONS (1)
  - HYPOTHERMIA [None]
